FAERS Safety Report 19912450 (Version 1)
Quarter: 2021Q4

REPORT INFORMATION
  Report Type: Spontaneous
  Country: GR (occurrence: GR)
  Receive Date: 20211004
  Receipt Date: 20211004
  Transmission Date: 20220303
  Serious: Yes (Hospitalization, Other)
  Sender: FDA-Public Use
  Company Number: GR-PFIZER INC-2021556057

PATIENT
  Age: 23 Year
  Sex: Male

DRUGS (7)
  1. CISPLATIN [Suspect]
     Active Substance: CISPLATIN
     Indication: Testis cancer
     Dosage: UNK UNK, CYCLIC (2 CYCLES OF EP)
  2. ETOPOSIDE [Suspect]
     Active Substance: ETOPOSIDE
     Indication: Testis cancer
     Dosage: UNK, CYCLIC (2 CYCLES OF EP)
  3. ETOPOSIDE [Suspect]
     Active Substance: ETOPOSIDE
     Dosage: UNK, CYCLIC (1 CYCLE OF BEP)
  4. PLATINUM [Suspect]
     Active Substance: PLATINUM
     Indication: Testis cancer
     Dosage: UNK, CYCLIC (1 CYCLE OF BEP)
  5. BLEOMYCIN [Suspect]
     Active Substance: BLEOMYCIN SULFATE
     Indication: Testis cancer
     Dosage: UNK, CYCLIC (1 CYCLE OF BEP)
  6. PACLITAXEL [Suspect]
     Active Substance: PACLITAXEL
     Indication: Product used for unknown indication
     Dosage: UNK
  7. IFOSFAMIDE [Suspect]
     Active Substance: IFOSFAMIDE
     Indication: Product used for unknown indication
     Dosage: UNK

REACTIONS (3)
  - Teratoma benign [Recovered/Resolved]
  - Anaemia [Unknown]
  - Thrombocytopenia [Unknown]
